FAERS Safety Report 23904985 (Version 1)
Quarter: 2024Q2

REPORT INFORMATION
  Report Type: Spontaneous
  Country: US (occurrence: US)
  Receive Date: 20240527
  Receipt Date: 20240527
  Transmission Date: 20240716
  Serious: Yes (Hospitalization, Other)
  Sender: FDA-Public Use
  Company Number: US-ALEMBIC PHARMACUETICALS LIMITED-2024SCAL000659

PATIENT

DRUGS (4)
  1. MIDODRINE HYDROCHLORIDE [Suspect]
     Active Substance: MIDODRINE HYDROCHLORIDE
     Indication: Hepatorenal syndrome
     Dosage: 10 MILLIGRAM, ORAL, EVERY 8 HOURS
     Route: 048
  2. GABAPENTIN [Suspect]
     Active Substance: GABAPENTIN
     Indication: Neuralgia
     Dosage: UNK
     Route: 065
  3. ALBUMIN HUMAN [Concomitant]
     Active Substance: ALBUMIN HUMAN
     Indication: Hepatorenal syndrome
     Dosage: 25 MILLIGRAM, EVERY 12 HOURS
     Route: 042
  4. OCTREOTIDE [Concomitant]
     Active Substance: OCTREOTIDE\OCTREOTIDE ACETATE
     Indication: Hepatorenal syndrome
     Dosage: 100 MICROGRAM PER 8 HOUR
     Route: 065

REACTIONS (4)
  - Acute kidney injury [Unknown]
  - Blood creatinine increased [Recovered/Resolved]
  - Oliguria [Unknown]
  - Urinary retention [Unknown]
